FAERS Safety Report 10329386 (Version 2)
Quarter: 2014Q3

REPORT INFORMATION
  Report Type: Spontaneous
  Country: LB (occurrence: LB)
  Receive Date: 20140721
  Receipt Date: 20140903
  Transmission Date: 20150326
  Serious: Yes (Life-Threatening, Hospitalization)
  Sender: FDA-Public Use
  Company Number: PHHY2014LB088477

PATIENT
  Sex: Male

DRUGS (1)
  1. LEPONEX [Suspect]
     Active Substance: CLOZAPINE
     Dosage: UNK UKN, UNK

REACTIONS (1)
  - Myocarditis [Recovered/Resolved]
